FAERS Safety Report 5333202-0 (Version None)
Quarter: 2007Q2

REPORT INFORMATION
  Report Type: 
  Country: None (occurrence: None)
  Receive Date: 20070524
  Receipt Date: 20070516
  Transmission Date: 20071010
  Serious: Yes (Death)
  Sender: FDA-Public Use
  Company Number: FR-BAXTER-2007BH004572

PATIENT
  Age: 84 Year
  Sex: Male

DRUGS (1)
  1. DIANEAL PD-1 [Suspect]
     Indication: PERITONEAL DIALYSIS
     Dosage: DOSE UNIT:UNKNOWN
     Route: 033
     Dates: start: 20070226, end: 20070321

REACTIONS (1)
  - GASTROINTESTINAL HAEMORRHAGE [None]
